FAERS Safety Report 26040241 (Version 1)
Quarter: 2025Q4

REPORT INFORMATION
  Report Type: Spontaneous
  Country: RU (occurrence: RU)
  Receive Date: 20251113
  Receipt Date: 20251113
  Transmission Date: 20260119
  Serious: Yes (Death, Life-Threatening, Hospitalization, Other)
  Sender: RANBAXY
  Company Number: RU-SUN PHARMACEUTICAL INDUSTRIES INC-2025R1-536312

PATIENT
  Age: 14 Year
  Sex: Female

DRUGS (6)
  1. METHYLPREDNISOLONE [Suspect]
     Active Substance: METHYLPREDNISOLONE
     Indication: Primary immunodeficiency syndrome
     Dosage: 1000 MILLIGRAM
     Route: 065
  2. METHYLPREDNISOLONE [Suspect]
     Active Substance: METHYLPREDNISOLONE
     Dosage: 500 MILLIGRAM
     Route: 065
  3. PREDNISOLONE [Suspect]
     Active Substance: PREDNISOLONE
     Indication: Primary immunodeficiency syndrome
     Dosage: 1.5 MILLIGRAM/KILOGRAM, DAILY
     Route: 065
  4. VORICONAZOLE [Suspect]
     Active Substance: VORICONAZOLE
     Indication: Antifungal treatment
     Dosage: UNK
     Route: 065
  5. COTRIMOXAZOLE [Suspect]
     Active Substance: SULFAMETHOXAZOLE\TRIMETHOPRIM
     Indication: Antibiotic prophylaxis
     Dosage: UNK
     Route: 065
  6. RITUXIMAB [Suspect]
     Active Substance: RITUXIMAB
     Indication: Primary immunodeficiency syndrome
     Dosage: 375 MILLIGRAM/SQ. METER
     Route: 065

REACTIONS (9)
  - Disseminated mucormycosis [Fatal]
  - Nephritis [Fatal]
  - Acute kidney injury [Fatal]
  - Condition aggravated [Fatal]
  - Pancytopenia [Fatal]
  - Bone marrow failure [Fatal]
  - Treatment failure [Fatal]
  - Septic shock [Fatal]
  - Multiple organ dysfunction syndrome [Fatal]
